FAERS Safety Report 15832019 (Version 2)
Quarter: 2019Q1

REPORT INFORMATION
  Report Type: Spontaneous
  Country: DK (occurrence: DK)
  Receive Date: 20190116
  Receipt Date: 20190201
  Transmission Date: 20190417
  Serious: Yes (Hospitalization, Other)
  Sender: FDA-Public Use
  Company Number: DK-TEVA-2019-DK-997237

PATIENT
  Sex: Male

DRUGS (2)
  1. ISOTRETINOIN TEVA [Suspect]
     Active Substance: ISOTRETINOIN
     Dosage: 60 MILLIGRAM DAILY; STRENGTH: 20 MG
     Route: 065
     Dates: end: 20181209
  2. ISOTRETINOIN TEVA [Suspect]
     Active Substance: ISOTRETINOIN
     Indication: ACNE
     Route: 065
     Dates: start: 20180416

REACTIONS (1)
  - Type 1 diabetes mellitus [Not Recovered/Not Resolved]
